FAERS Safety Report 8508340-1 (Version None)
Quarter: 2012Q3

REPORT INFORMATION
  Report Type: 
  Country: None (occurrence: None)
  Receive Date: 20120713
  Receipt Date: 20120704
  Transmission Date: 20120928
  Serious: Yes (Other)
  Sender: FDA-Public Use
  Company Number: CA-JNJFOC-20120702475

PATIENT
  Sex: Female
  Weight: 74.84 kg

DRUGS (2)
  1. REMICADE [Suspect]
     Indication: COLITIS ULCERATIVE
     Dosage: START DATE ; AROUND 2007
     Route: 042
  2. INSULIN [Concomitant]
     Route: 065

REACTIONS (1)
  - ABSCESS LIMB [None]
